FAERS Safety Report 8903640 (Version 2)
Quarter: 2013Q1

REPORT INFORMATION
  Report Type: Report from Study
  Country: JP (occurrence: JP)
  Receive Date: 20121113
  Receipt Date: 20130212
  Transmission Date: 20140127
  Serious: Yes (Death, Other)
  Sender: FDA-Public Use
  Company Number: JP-CELGENEUS-087-21880-11012288

PATIENT
  Age: 78 Year
  Sex: Female

DRUGS (13)
  1. REVLIMID [Suspect]
     Indication: 5Q MINUS SYNDROME
     Dosage: 5 MILLIGRAM
     Route: 048
     Dates: start: 20101015, end: 20101104
  2. REVLIMID [Suspect]
     Dosage: 5 MILLIGRAM
     Route: 048
     Dates: start: 20101112, end: 20101115
  3. GLAKAY [Concomitant]
     Indication: 5Q MINUS SYNDROME
     Dosage: 45 MILLIGRAM
     Route: 048
     Dates: start: 200707, end: 20101126
  4. PRIMOBOLAN [Concomitant]
     Indication: 5Q MINUS SYNDROME
     Dosage: 15 MILLIGRAM
     Route: 048
     Dates: start: 200707, end: 20101126
  5. NINJIN-YOEI-TO [Concomitant]
     Indication: 5Q MINUS SYNDROME
     Dosage: 6 GRAM
     Route: 048
     Dates: start: 199008, end: 20101111
  6. FOLIAMIN [Concomitant]
     Indication: 5Q MINUS SYNDROME
     Dosage: 5 MILLIGRAM
     Route: 048
     Dates: start: 201008, end: 20101111
  7. RANITAC [Concomitant]
     Indication: 5Q MINUS SYNDROME
     Dosage: 150 MILLIGRAM
     Route: 048
     Dates: start: 200808, end: 20101126
  8. ALBUMIN TANNATE [Concomitant]
     Indication: DIARRHOEA
     Dosage: 3 GRAM
     Route: 048
     Dates: start: 200907, end: 20101111
  9. CIPROXAN [Concomitant]
     Indication: DIARRHOEA
     Dosage: 600 MILLIGRAM
     Route: 048
     Dates: start: 200907, end: 20101109
  10. LIMARMONE [Concomitant]
     Indication: 5Q MINUS SYNDROME
     Dosage: 30 MICROGRAM
     Route: 048
     Dates: start: 20101105, end: 20101126
  11. LASIX [Concomitant]
     Indication: CARDIAC FAILURE
     Dosage: 20 MILLIGRAM
     Route: 048
     Dates: start: 20101105, end: 20101109
  12. LASIX [Concomitant]
     Dosage: 20 MILLIGRAM
     Route: 048
     Dates: start: 20101112, end: 20101126
  13. LASIX [Concomitant]
     Dosage: 10 MILLIGRAM
     Route: 041
     Dates: start: 20101105, end: 20101105

REACTIONS (5)
  - Myelodysplastic syndrome [Fatal]
  - Cardiac failure [Fatal]
  - Diabetes mellitus [Not Recovered/Not Resolved]
  - Anaemia [Unknown]
  - Nausea [Recovered/Resolved]
